FAERS Safety Report 15577935 (Version 3)
Quarter: 2019Q2

REPORT INFORMATION
  Report Type: Spontaneous
  Country: US (occurrence: US)
  Receive Date: 20181102
  Receipt Date: 20190620
  Transmission Date: 20190711
  Serious: No
  Sender: FDA-Public Use
  Company Number: US-PFIZER INC-2018449643

PATIENT
  Age: 58 Year
  Sex: Female

DRUGS (1)
  1. EUCRISA [Suspect]
     Active Substance: CRISABOROLE
     Indication: ECZEMA
     Dosage: UNK, 2X/DAY (60 GM)
     Route: 061
     Dates: start: 201806, end: 201812

REACTIONS (4)
  - Application site pain [Recovering/Resolving]
  - Application site irritation [Recovering/Resolving]
  - Drug ineffective [Unknown]
  - Application site dryness [Recovering/Resolving]

NARRATIVE: CASE EVENT DATE: 2018
